FAERS Safety Report 25773995 (Version 1)
Quarter: 2025Q3

REPORT INFORMATION
  Report Type: Spontaneous
  Country: US (occurrence: US)
  Receive Date: 20250908
  Receipt Date: 20250908
  Transmission Date: 20251021
  Serious: Yes (Other)
  Sender: NOVO NORDISK
  Company Number: US-NOVOPROD-1512785

PATIENT
  Age: 68 Year

DRUGS (1)
  1. WEGOVY [Suspect]
     Active Substance: SEMAGLUTIDE
     Indication: Weight control

REACTIONS (4)
  - Atrial fibrillation [Unknown]
  - Meniscus injury [Unknown]
  - Intervertebral disc degeneration [Unknown]
  - Sciatic nerve injury [Unknown]
